FAERS Safety Report 4991711-8 (Version None)
Quarter: 2006Q2

REPORT INFORMATION
  Report Type: 
  Country: None (occurrence: None)
  Receive Date: 20060504
  Receipt Date: 20060407
  Transmission Date: 20061013
  Serious: Yes (Other)
  Sender: FDA-Public Use
  Company Number: 4C0064778

PATIENT
  Age: 33 Year
  Sex: Female

DRUGS (3)
  1. SALBUTAMOL SULPHATE [Suspect]
     Indication: ASTHMA
     Dosage: 100MCG AS REQUIRED
     Route: 055
     Dates: start: 19860101
  2. MICROGYNON 30 [Concomitant]
     Dosage: 1TAB PER DAY
     Route: 065
     Dates: start: 20030218
  3. AERIUS [Concomitant]
     Dosage: 5MG PER DAY
     Route: 065
     Dates: start: 20030303

REACTIONS (3)
  - CHEST DISCOMFORT [None]
  - DEVICE MALFUNCTION [None]
  - PHARMACEUTICAL PRODUCT COMPLAINT [None]
